FAERS Safety Report 21870238 (Version 2)
Quarter: 2023Q2

REPORT INFORMATION
  Report Type: Other
  Country: US (occurrence: None)
  Receive Date: 20230117
  Receipt Date: 20230508
  Transmission Date: 20230722
  Serious: Yes (Hospitalization)
  Sender: FDA-Public Use
  Company Number: US-ROCHE-3264746

PATIENT
  Age: 47 Year
  Sex: Female

DRUGS (2)
  1. OCREVUS [Suspect]
     Active Substance: OCRELIZUMAB
     Indication: Relapsing multiple sclerosis
     Dosage: UNKNOWN; SUBSEQUENTLY 600 MG FOR EVERY 6 MONTHS;
     Route: 042
     Dates: start: 20211110
  2. RITUXAN [Suspect]
     Active Substance: RITUXIMAB
     Indication: Systemic lupus erythematosus
     Dosage: UNKNOWN DATE OF TREATMENT: 6/1/2022, 11/24/2021, 11/10/2021
     Route: 065

REACTIONS (2)
  - Systemic lupus erythematosus [Unknown]
  - Pancreatitis [Unknown]
